FAERS Safety Report 21458396 (Version 2)
Quarter: 2022Q4

REPORT INFORMATION
  Report Type: Spontaneous
  Country: CH (occurrence: CH)
  Receive Date: 20221014
  Receipt Date: 20221018
  Transmission Date: 20230113
  Serious: Yes (Death, Hospitalization, Other)
  Sender: FDA-Public Use
  Company Number: None

PATIENT
  Age: 83 Year
  Sex: Male

DRUGS (19)
  1. LORAZEPAM [Suspect]
     Active Substance: LORAZEPAM
     Dosage: 0.5 MG, AS NEEDED (2X)
     Route: 048
     Dates: end: 20210802
  2. MORPHINE SULFATE [Suspect]
     Active Substance: MORPHINE SULFATE
     Dosage: 10 MG, 3X/DAY
     Dates: start: 202106, end: 2021
  3. MORPHINE SULFATE [Suspect]
     Active Substance: MORPHINE SULFATE
     Dosage: 10 MG, 1X/DAY
     Dates: start: 2021, end: 20210724
  4. QUETIAPINE [Suspect]
     Active Substance: QUETIAPINE
     Dosage: 12.5 MG, 1X/DAY
     Route: 048
     Dates: start: 20210801, end: 20210802
  5. HALDOL [Suspect]
     Active Substance: HALOPERIDOL
     Dosage: 0.5 MG, AS NEEDED (3X)
     Route: 058
     Dates: end: 20210729
  6. MORPHINE [Suspect]
     Active Substance: MORPHINE
     Dosage: 1 MG, IN TOTAL
     Route: 058
     Dates: start: 20210802, end: 20210802
  7. MORPHINE [Suspect]
     Active Substance: MORPHINE
     Dosage: 2.5 MG, IN TOTAL
     Route: 058
     Dates: start: 20210802, end: 20210802
  8. MORPHINE [Suspect]
     Active Substance: MORPHINE
     Dosage: 2.5 MG, IN TOTAL
     Route: 058
     Dates: start: 20210804, end: 20210804
  9. SODIUM PICOSULFATE [Concomitant]
     Active Substance: SODIUM PICOSULFATE
     Indication: Constipation
     Dosage: UNK
  10. AMOXICILLIN\CLAVULANATE POTASSIUM [Concomitant]
     Active Substance: AMOXICILLIN\CLAVULANATE POTASSIUM
     Dosage: 250MG/125MG
  11. SINTROM [Concomitant]
     Active Substance: ACENOCOUMAROL
     Dosage: UNK
  12. METOPROLOL SUCCINATE [Concomitant]
     Active Substance: METOPROLOL SUCCINATE
     Dosage: UNK
  13. TORSEMIDE [Concomitant]
     Active Substance: TORSEMIDE
     Dosage: UNK
  14. PREDNISONE [Concomitant]
     Active Substance: PREDNISONE
     Dosage: UNK
  15. ESOMEPRAZOLE MAGNESIUM [Concomitant]
     Active Substance: ESOMEPRAZOLE MAGNESIUM
     Dosage: UNK
  16. EUTHYROX [Concomitant]
     Active Substance: LEVOTHYROXINE SODIUM
     Dosage: UNK
  17. MYCOSTATIN [Concomitant]
     Active Substance: NYSTATIN
     Dosage: UNK
  18. DAFALGAN [Concomitant]
     Active Substance: ACETAMINOPHEN
     Dosage: UNK
  19. ATROVENT [Concomitant]
     Active Substance: IPRATROPIUM BROMIDE
     Dosage: UNK

REACTIONS (5)
  - Death [Fatal]
  - Ileus paralytic [Recovered/Resolved]
  - Faecaloma [Recovered/Resolved]
  - Wrong technique in product usage process [Unknown]
  - Off label use [Unknown]

NARRATIVE: CASE EVENT DATE: 20210724
